FAERS Safety Report 4319580-X (Version None)
Quarter: 2004Q1

REPORT INFORMATION
  Report Type: 
  Country: None (occurrence: None)
  Receive Date: 20040315
  Receipt Date: 20040301
  Transmission Date: 20041129
  Serious: Yes (Hospitalization)
  Sender: FDA-Public Use
  Company Number: HQWYE471102MAR04

PATIENT
  Age: 43 Year
  Sex: Female
  Weight: 81.72 kg

DRUGS (3)
  1. ADVIL ALLERGY SINUS [Suspect]
     Indication: EYE PRURITUS
     Dosage: 1 TABLET 1X PER 1 DAY, ORAL
     Route: 048
     Dates: start: 20040116, end: 20040116
  2. ADVIL ALLERGY SINUS [Suspect]
     Indication: LACRIMATION INCREASED
     Dosage: 1 TABLET 1X PER 1 DAY, ORAL
     Route: 048
     Dates: start: 20040116, end: 20040116
  3. ADVIL ALLERGY SINUS [Suspect]
     Indication: SINUS HEADACHE
     Dosage: 1 TABLET 1X PER 1 DAY, ORAL
     Route: 048
     Dates: start: 20040116, end: 20040116

REACTIONS (1)
  - SUBARACHNOID HAEMORRHAGE [None]
